FAERS Safety Report 8034320-9 (Version None)
Quarter: 2012Q1

REPORT INFORMATION
  Report Type: 
  Country: None (occurrence: None)
  Receive Date: 20120110
  Receipt Date: 20120107
  Transmission Date: 20120608
  Serious: Yes (Hospitalization)
  Sender: FDA-Public Use
  Company Number: PHHY2012NL001563

PATIENT
  Sex: Male

DRUGS (4)
  1. ZOMETA [Suspect]
     Indication: PROSTATE CANCER METASTATIC
     Dosage: 4 MG/100 ML, 1X PER 28 DAYS
     Route: 042
  2. ZOMETA [Suspect]
     Dosage: 4 MG/100 ML, 1X PER 28 DAYS
     Route: 042
     Dates: start: 20120107
  3. ZOMETA [Suspect]
     Dosage: 4 MG/100 ML, 1X PER 28 DAYS
     Route: 042
     Dates: start: 20111205
  4. ZOMETA [Suspect]
     Dosage: 4 MG/100 ML, 1X PER 28 DAYS
     Route: 042
     Dates: start: 20100518

REACTIONS (2)
  - PNEUMONIA [None]
  - PYREXIA [None]
